FAERS Safety Report 10242480 (Version 2)
Quarter: 2014Q3

REPORT INFORMATION
  Report Type: Spontaneous
  Country: US (occurrence: US)
  Receive Date: 20140617
  Receipt Date: 20140730
  Transmission Date: 20150326
  Serious: Yes (Other)
  Sender: FDA-Public Use
  Company Number: US-PFIZER INC-2014162036

PATIENT
  Age: 65 Year
  Sex: Male
  Weight: 82.54 kg

DRUGS (2)
  1. ROBITUSSIN PEAK COLD COUGH PLUS CHEST CONGESTION DM [Suspect]
     Active Substance: DEXTROMETHORPHAN HYDROBROMIDE\GUAIFENESIN
     Indication: COUGH
     Dosage: 10 ML, 6X/DAY (10ML EVERY FOUR HOURS)
     Dates: end: 20140609
  2. ACETYLSALICYLIC ACID [Concomitant]
     Active Substance: ASPIRIN
     Dosage: 2 DF, 2X/DAY(TWO TABLETS IN THE MORNING AND TWO TABLETS AT NIGHT)

REACTIONS (6)
  - Product quality issue [Unknown]
  - Product taste abnormal [Unknown]
  - Fear [Unknown]
  - Throat irritation [Unknown]
  - Choking [Unknown]
  - Dyspnoea [Unknown]

NARRATIVE: CASE EVENT DATE: 20140609
